FAERS Safety Report 22120656 (Version 1)
Quarter: 2023Q1

REPORT INFORMATION
  Report Type: Report from Study
  Country: CO (occurrence: CO)
  Receive Date: 20230321
  Receipt Date: 20230321
  Transmission Date: 20230418
  Serious: Yes (Other)
  Sender: FDA-Public Use
  Company Number: CO-AstraZeneca-2023A062113

PATIENT
  Age: 23 Week
  Sex: Male
  Weight: 4 kg

DRUGS (1)
  1. SYNAGIS [Suspect]
     Active Substance: PALIVIZUMAB
     Indication: Respiratory disorder
     Dosage: MONTHLY
     Route: 030
     Dates: start: 20230106, end: 20230307

REACTIONS (1)
  - Cyanosis [Recovering/Resolving]

NARRATIVE: CASE EVENT DATE: 20230307
